FAERS Safety Report 8831034 (Version 1)
Quarter: 2012Q4

REPORT INFORMATION
  Report Type: 
  Country: CZ (occurrence: CZ)
  Receive Date: 20121009
  Receipt Date: 20121009
  Transmission Date: 20130627
  Serious: Yes (Death)
  Sender: FDA-Public Use
  Company Number: PHHY2012CZ088724

PATIENT

DRUGS (1)
  1. SANDIMMUN NEORAL [Suspect]
     Dosage: 50-100 mg/24 h

REACTIONS (1)
  - Embolism [Fatal]
